FAERS Safety Report 5084575-8 (Version None)
Quarter: 2006Q3

REPORT INFORMATION
  Report Type: 
  Country: None (occurrence: None)
  Receive Date: 20060821
  Receipt Date: 20060814
  Transmission Date: 20061208
  Serious: Yes (Death, Hospitalization)
  Sender: FDA-Public Use
  Company Number: PHEH2006US10404

PATIENT
  Age: 54 Year
  Sex: Male

DRUGS (1)
  1. GLEEVEC [Suspect]
     Indication: ABDOMINAL NEOPLASM
     Route: 048
     Dates: start: 20050101, end: 20060201

REACTIONS (3)
  - ABDOMINAL NEOPLASM [None]
  - DEATH [None]
  - SURGERY [None]
